FAERS Safety Report 19473940 (Version 3)
Quarter: 2021Q4

REPORT INFORMATION
  Report Type: Spontaneous
  Country: US (occurrence: US)
  Receive Date: 20210629
  Receipt Date: 20211117
  Transmission Date: 20220304
  Serious: Yes (Other)
  Sender: FDA-Public Use
  Company Number: US-PFIZER INC-2021739136

PATIENT
  Age: 69 Year
  Sex: Female

DRUGS (2)
  1. IBRANCE [Suspect]
     Active Substance: PALBOCICLIB
     Indication: Breast cancer female
     Dosage: 125 MG, CYCLIC (ONCE DAILY FOR 21 DAYS EVERY 4 WEEKS)
     Dates: start: 20180109
  2. IBRANCE [Suspect]
     Active Substance: PALBOCICLIB
     Dosage: 125 MG
     Dates: start: 20200516

REACTIONS (2)
  - Neuropathy peripheral [Not Recovered/Not Resolved]
  - Alopecia [Not Recovered/Not Resolved]
